FAERS Safety Report 9551109 (Version 1)
Quarter: 2013Q3

REPORT INFORMATION
  Report Type: Spontaneous
  Country: US (occurrence: US)
  Receive Date: 20130925
  Receipt Date: 20130925
  Transmission Date: 20140515
  Serious: No
  Sender: FDA-Public Use
  Company Number: US-BIOGENIDEC-2013BI069806

PATIENT
  Age: 39 Year
  Sex: Female

DRUGS (3)
  1. AVONEX [Suspect]
     Indication: MULTIPLE SCLEROSIS
     Route: 030
     Dates: start: 19980101, end: 20090901
  2. AVONEX [Suspect]
     Indication: MULTIPLE SCLEROSIS
     Route: 030
     Dates: start: 20100904, end: 20111101
  3. AVONEX [Suspect]
     Indication: MULTIPLE SCLEROSIS
     Route: 030
     Dates: start: 20121130, end: 20130301

REACTIONS (4)
  - Hepatic enzyme increased [Recovered/Resolved]
  - Nasopharyngitis [Recovered/Resolved]
  - Multiple sclerosis relapse [Recovered/Resolved]
  - Malaise [Unknown]
